FAERS Safety Report 7635273-5 (Version None)
Quarter: 2011Q3

REPORT INFORMATION
  Report Type: 
  Country: None (occurrence: None)
  Receive Date: 20110718
  Receipt Date: 20110708
  Transmission Date: 20111222
  Serious: Yes (Hospitalization)
  Sender: FDA-Public Use
  Company Number: DKLU1070214

PATIENT
  Age: 2 Year
  Sex: Female

DRUGS (14)
  1. PREVACID [Concomitant]
  2. TOPAMAX [Concomitant]
  3. ALBUTEROL [Concomitant]
  4. FLOMAX [Concomitant]
  5. RISPERDAL [Concomitant]
  6. ATIVAN [Concomitant]
  7. MIRALAX [Concomitant]
  8. KEPPRA [Concomitant]
  9. CATAPRES [Concomitant]
  10. SABRIL [Suspect]
     Indication: EPILEPSY
     Dosage: 200 MG MILLIGRAM(S), 2 IN 1 D, ORAL
     Route: 048
     Dates: start: 20110121
  11. SABRIL [Suspect]
     Indication: INFANTILE SPASMS
     Dosage: 200 MG MILLIGRAM(S), 2 IN 1 D, ORAL
     Route: 048
     Dates: start: 20110121
  12. KLONOPIN [Concomitant]
  13. ZONEGRAN [Concomitant]
  14. PULMICORT [Concomitant]

REACTIONS (2)
  - ACUTE RESPIRATORY FAILURE [None]
  - RESPIRATORY DISTRESS [None]
